FAERS Safety Report 6722665-1 (Version None)
Quarter: 2010Q2

REPORT INFORMATION
  Report Type: 
  Country: None (occurrence: None)
  Receive Date: 20100512
  Receipt Date: 20100503
  Transmission Date: 20101027
  Serious: Yes (Hospitalization)
  Sender: FDA-Public Use
  Company Number: PHHY2010IT28528

PATIENT
  Age: 56 Year
  Sex: Male

DRUGS (1)
  1. EVEROLIMUS [Suspect]

REACTIONS (1)
  - CEREBRAL HAEMORRHAGE [None]
